FAERS Safety Report 4689224-6 (Version None)
Quarter: 2005Q2

REPORT INFORMATION
  Report Type: 
  Country: None (occurrence: None)
  Receive Date: 20050608
  Receipt Date: 20050310
  Transmission Date: 20051028
  Serious: No
  Sender: FDA-Public Use
  Company Number: 2005-BP-03868BP

PATIENT
  Age: 65 Year
  Sex: Male

DRUGS (11)
  1. SPIRIVA [Suspect]
     Indication: CHRONIC OBSTRUCTIVE PULMONARY DISEASE
     Dosage: 18 MCG (18 MCG), IH
     Route: 055
     Dates: start: 20040101
  2. SPIRIVA [Suspect]
     Indication: CHRONIC OBSTRUCTIVE PULMONARY DISEASE
     Dosage: 18 MCG (18 MCG), IH
     Route: 055
     Dates: start: 20040101
  3. FLOVENT [Concomitant]
  4. ALBUTEROL [Concomitant]
  5. ELAVIL [Concomitant]
  6. ALTACE [Concomitant]
  7. PRILOSEC [Concomitant]
  8. ADVAIR DISKUS 100/50 [Concomitant]
  9. CLORAZEPATE (CLORAZEPATE DIPOTASSIUM) [Concomitant]
  10. AMITRIPTYLINE HCL [Concomitant]
  11. ASPIRIN [Concomitant]

REACTIONS (3)
  - AGEUSIA [None]
  - DRUG EFFECT DECREASED [None]
  - DYSPNOEA [None]
